FAERS Safety Report 13088873 (Version 1)
Quarter: 2016Q4

REPORT INFORMATION
  Report Type: Spontaneous
  Country: US (occurrence: US)
  Receive Date: 20161231
  Receipt Date: 20161231
  Transmission Date: 20170207
  Serious: Yes (Disabling)
  Sender: FDA-Public Use
  Company Number: None

PATIENT
  Age: 24 Year
  Sex: Male
  Weight: 75 kg

DRUGS (2)
  1. OFLOXACIN. [Suspect]
     Active Substance: OFLOXACIN
     Indication: URETHRITIS
     Dosage: ?          QUANTITY:2 TABLET(S);?
     Route: 048
  2. ALPFA LIPOIC ACID [Concomitant]

REACTIONS (5)
  - Nerve injury [None]
  - Tendon pain [None]
  - Formication [None]
  - Paraesthesia [None]
  - Pain [None]
